FAERS Safety Report 19370389 (Version 1)
Quarter: 2021Q2

REPORT INFORMATION
  Report Type: Spontaneous
  Country: US (occurrence: US)
  Receive Date: 20210604
  Receipt Date: 20210604
  Transmission Date: 20210717
  Serious: Yes (Hospitalization, Other)
  Sender: FDA-Public Use
  Company Number: US-BLUEPRINT MEDICINES CORPORATION-SP-US-2021-000796

PATIENT
  Age: 76 Year
  Sex: Female

DRUGS (1)
  1. AYVAKIT [Suspect]
     Active Substance: AVAPRITINIB
     Indication: GASTROINTESTINAL STROMAL TUMOUR
     Route: 048
     Dates: start: 20180101

REACTIONS (8)
  - Internal haemorrhage [Unknown]
  - Hypophagia [Unknown]
  - Micturition disorder [Unknown]
  - Drug ineffective [Unknown]
  - Coma [Unknown]
  - Hypotension [Unknown]
  - Neoplasm [Unknown]
  - Insomnia [Unknown]

NARRATIVE: CASE EVENT DATE: 20210527
